FAERS Safety Report 5630023-6 (Version None)
Quarter: 2008Q1

REPORT INFORMATION
  Report Type: 
  Country: None (occurrence: None)
  Receive Date: 20080214
  Receipt Date: 20080206
  Transmission Date: 20080703
  Serious: Yes (Hospitalization)
  Sender: FDA-Public Use
  Company Number: 18344

PATIENT
  Age: 22 Year
  Sex: Male

DRUGS (5)
  1. VINCRISTINE [Suspect]
     Indication: B-CELL LYMPHOMA
  2. DOXORUBICIN HCL [Suspect]
     Indication: B-CELL LYMPHOMA
  3. PREDNISOLONE [Suspect]
     Indication: B-CELL LYMPHOMA
  4. SENDOXAN [Suspect]
     Indication: B-CELL LYMPHOMA
  5. MABTHERA [Suspect]
     Indication: B-CELL LYMPHOMA

REACTIONS (3)
  - LIP BLISTER [None]
  - NEUTROPENIA [None]
  - PYREXIA [None]
